FAERS Safety Report 16276687 (Version 1)
Quarter: 2019Q2

REPORT INFORMATION
  Report Type: Spontaneous
  Country: US (occurrence: US)
  Receive Date: 20190505
  Receipt Date: 20190505
  Transmission Date: 20190711
  Serious: Yes (Other)
  Sender: FDA-Public Use
  Company Number: None

PATIENT
  Age: 42 Year
  Sex: Male
  Weight: 126.9 kg

DRUGS (4)
  1. CLONAZEPAM. [Suspect]
     Active Substance: CLONAZEPAM
     Indication: SEIZURE
     Dosage: ?          QUANTITY:1 TABLET(S);?
     Route: 048
     Dates: start: 20111019
  2. TOPIRAMATE 200MG [Suspect]
     Active Substance: TOPIRAMATE
     Indication: SEIZURE
     Dosage: ?          QUANTITY:1 TABLET(S);?
     Route: 048
     Dates: start: 20110117
  3. CLONAZEPAM. [Suspect]
     Active Substance: CLONAZEPAM
     Indication: ANXIETY
     Dosage: ?          QUANTITY:1 TABLET(S);?
     Route: 048
     Dates: start: 20111019
  4. TOPIRAMATE 200MG [Suspect]
     Active Substance: TOPIRAMATE
     Indication: MIGRAINE
     Dosage: ?          QUANTITY:1 TABLET(S);?
     Route: 048
     Dates: start: 20110117

REACTIONS (10)
  - Nasal congestion [None]
  - Vomiting [None]
  - Tooth loss [None]
  - Insomnia [None]
  - Anger [None]
  - Suicidal ideation [None]
  - Dizziness [None]
  - Dry mouth [None]
  - Dysarthria [None]
  - Amnesia [None]

NARRATIVE: CASE EVENT DATE: 20121109
